FAERS Safety Report 9920112 (Version 1)
Quarter: 2014Q1

REPORT INFORMATION
  Report Type: Spontaneous
  Country: PT (occurrence: PT)
  Receive Date: 20140224
  Receipt Date: 20140224
  Transmission Date: 20141002
  Serious: Yes (Hospitalization)
  Sender: FDA-Public Use
  Company Number: PT-ABBVIE-14P-130-1202569-00

PATIENT
  Age: 52 Year
  Sex: Female

DRUGS (2)
  1. HUMIRA [Suspect]
     Indication: PSORIASIS
     Dates: start: 20100311, end: 201305
  2. HUMIRA [Suspect]
     Dates: start: 201306, end: 201309

REACTIONS (5)
  - Transient ischaemic attack [Unknown]
  - Vision blurred [Recovered/Resolved]
  - Blindness transient [Recovered/Resolved]
  - Vision blurred [Recovering/Resolving]
  - Multiple sclerosis [Unknown]
